FAERS Safety Report 14954204 (Version 4)
Quarter: 2019Q1

REPORT INFORMATION
  Report Type: Spontaneous
  Country: TW (occurrence: TW)
  Receive Date: 20180530
  Receipt Date: 20190213
  Transmission Date: 20190417
  Serious: Yes (Hospitalization, Other)
  Sender: FDA-Public Use
  Company Number: TW-PFIZER INC-2018217955

PATIENT
  Age: 25 Year
  Sex: Male

DRUGS (1)
  1. BENEFIX [Suspect]
     Active Substance: COAGULATION FACTOR IX RECOMBINANT HUMAN\ISOPROPYL ALCOHOL
     Indication: FACTOR IX DEFICIENCY
     Dosage: 5000 IU, WEEKLY
     Route: 042

REACTIONS (6)
  - Contusion [Recovered/Resolved]
  - Skin abrasion [Recovered/Resolved]
  - Seizure [Recovering/Resolving]
  - Fall [Recovered/Resolved]
  - Head injury [Recovering/Resolving]
  - Loss of consciousness [Recovered/Resolved]

NARRATIVE: CASE EVENT DATE: 20180525
